FAERS Safety Report 7112313-3 (Version None)
Quarter: 2010Q4

REPORT INFORMATION
  Report Type: 
  Country: None (occurrence: None)
  Receive Date: 20101119
  Receipt Date: 20100706
  Transmission Date: 20110411
  Serious: No
  Sender: FDA-Public Use
  Company Number: A0868663A

PATIENT
  Age: 50 Year
  Sex: Male

DRUGS (3)
  1. AVODART [Suspect]
     Indication: VARICOSE VEIN
     Dosage: .5MG PER DAY
     Route: 048
     Dates: start: 20090101
  2. CHOLESTEROL [Concomitant]
  3. BLOOD PRESSURE MEDICATION [Concomitant]

REACTIONS (3)
  - ABDOMINAL PAIN LOWER [None]
  - HAEMATOSPERMIA [None]
  - LIBIDO DECREASED [None]
